FAERS Safety Report 12012571 (Version 1)
Quarter: 2016Q1

REPORT INFORMATION
  Report Type: Spontaneous
  Country: CZ (occurrence: CZ)
  Receive Date: 20160205
  Receipt Date: 20160205
  Transmission Date: 20160526
  Serious: Yes (Life-Threatening, Hospitalization, Other)
  Sender: FDA-Public Use
  Company Number: CZ-ROCHE-1703923

PATIENT
  Age: 56 Year
  Sex: Male

DRUGS (3)
  1. ELICEA (CZECH REPUBLIC) [Concomitant]
     Route: 048
  2. ZELBORAF [Concomitant]
     Active Substance: VEMURAFENIB
     Indication: METASTATIC MALIGNANT MELANOMA
     Dosage: 4-0-4
     Route: 048
     Dates: start: 20151127, end: 20160130
  3. COTELLIC [Suspect]
     Active Substance: COBIMETINIB
     Indication: METASTATIC MALIGNANT MELANOMA
     Dosage: IN SPECIFIC TREATMENT PROGRAM
     Route: 048
     Dates: start: 20160113, end: 20160129

REACTIONS (6)
  - Diarrhoea [Recovering/Resolving]
  - C-reactive protein increased [Recovering/Resolving]
  - Blepharitis [Recovering/Resolving]
  - Renal function test abnormal [Recovering/Resolving]
  - Pyrexia [Recovering/Resolving]
  - Aphthous ulcer [Recovering/Resolving]

NARRATIVE: CASE EVENT DATE: 20160121
